FAERS Safety Report 11230701 (Version 1)
Quarter: 2015Q2

REPORT INFORMATION
  Report Type: Spontaneous
  Country: US (occurrence: None)
  Receive Date: 20150630
  Receipt Date: 20150630
  Transmission Date: 20150821
  Serious: Yes (Disabling, Other)
  Sender: FDA-Public Use
  Company Number: None

PATIENT
  Age: 75 Year
  Sex: Female
  Weight: 68.95 kg

DRUGS (6)
  1. CELEBREX [Suspect]
     Active Substance: CELECOXIB
     Indication: ARTHRITIS
     Dosage: 1 PILL
     Route: 048
     Dates: start: 20150325, end: 20150629
  2. CENTRIM SILVER [Concomitant]
  3. OMEPRESOL [Concomitant]
  4. AMLODAPRINE [Concomitant]
  5. CELEBRIX [Concomitant]
  6. GERATOL [Concomitant]

REACTIONS (3)
  - Activities of daily living impaired [None]
  - Product substitution issue [None]
  - Pain [None]

NARRATIVE: CASE EVENT DATE: 20150401
